FAERS Safety Report 12365020 (Version 4)
Quarter: 2016Q2

REPORT INFORMATION
  Report Type: Spontaneous
  Country: TR (occurrence: TR)
  Receive Date: 20160513
  Receipt Date: 20160531
  Transmission Date: 20160815
  Serious: Yes (Life-Threatening, Hospitalization, Other)
  Sender: FDA-Public Use
  Company Number: TR-SA-2016SA092551

PATIENT
  Age: 62 Year
  Sex: Male

DRUGS (1)
  1. CLOPIDOGREL BISULFATE. [Suspect]
     Active Substance: CLOPIDOGREL BISULFATE
     Route: 065
     Dates: start: 201505

REACTIONS (13)
  - Circulatory collapse [Recovered/Resolved]
  - Transplant failure [Recovered/Resolved]
  - Mediastinal disorder [Recovered/Resolved]
  - Blood pressure decreased [Recovering/Resolving]
  - Electrocardiogram abnormal [Recovered/Resolved]
  - Graft complication [Recovering/Resolving]
  - Cardiac tamponade [Recovered/Resolved]
  - Pericardial effusion [Recovered/Resolved]
  - Haemoglobin decreased [Recovered/Resolved]
  - Hypokinesia [Recovered/Resolved]
  - Diastolic dysfunction [Recovered/Resolved]
  - Ejection fraction decreased [Recovered/Resolved]
  - Haemorrhage [Recovered/Resolved]

NARRATIVE: CASE EVENT DATE: 201505
